FAERS Safety Report 10510119 (Version 1)
Quarter: 2014Q4

REPORT INFORMATION
  Report Type: Spontaneous
  Country: US (occurrence: None)
  Receive Date: 20141009
  Receipt Date: 20141009
  Transmission Date: 20150528
  Serious: Yes (Other)
  Sender: FDA-Public Use
  Company Number: None

PATIENT
  Age: 81 Year
  Sex: Female
  Weight: 74.84 kg

DRUGS (11)
  1. CRESTOR [Concomitant]
     Active Substance: ROSUVASTATIN CALCIUM
  2. LANTUS [Concomitant]
     Active Substance: INSULIN GLARGINE
  3. PRADAXA [Concomitant]
     Active Substance: DABIGATRAN ETEXILATE MESYLATE
  4. KLOR-CON [Concomitant]
     Active Substance: POTASSIUM CHLORIDE
  5. THYROXINE [Concomitant]
     Active Substance: LEVOTHYROXINE
  6. MICARDIS [Concomitant]
     Active Substance: TELMISARTAN
  7. FUROSEMIDE. [Concomitant]
     Active Substance: FUROSEMIDE
  8. POLYETHYLENE GLYCOL [Concomitant]
     Active Substance: POLYETHYLENE GLYCOLS
  9. GLIPIZIDE XL [Suspect]
     Active Substance: GLIPIZIDE
     Indication: PRODUCT USED FOR UNKNOWN INDICATION
     Route: 048
     Dates: start: 20140917, end: 20140919
  10. VITAMIN D [Concomitant]
     Active Substance: CHOLECALCIFEROL
  11. COLCRYS [Concomitant]
     Active Substance: COLCHICINE

REACTIONS (6)
  - Hyperhidrosis [None]
  - Chest discomfort [None]
  - Abdominal pain upper [None]
  - Dizziness [None]
  - Diarrhoea [None]
  - Muscular weakness [None]

NARRATIVE: CASE EVENT DATE: 20140917
